FAERS Safety Report 5273828-6 (Version None)
Quarter: 2007Q1

REPORT INFORMATION
  Report Type: 
  Country: None (occurrence: None)
  Receive Date: 20070323
  Receipt Date: 20070314
  Transmission Date: 20070707
  Serious: Yes (Other)
  Sender: FDA-Public Use
  Company Number: FR-AVENTIS-200712351GDDC

PATIENT
  Age: 50 Year
  Sex: Male

DRUGS (2)
  1. MYCOSTER                           /00619302/ [Suspect]
     Indication: TRICHOPHYTON INFECTION
     Dosage: DOSE: ONE APPLICATION EVERY DAY
     Route: 003
     Dates: start: 20070221, end: 20070201
  2. MYCOSTER                           /00619302/ [Suspect]
     Dosage: DOSE: ONE APPLICATION EVERY DAY
     Route: 003
     Dates: start: 20070221, end: 20070201

REACTIONS (4)
  - OEDEMA PERIPHERAL [None]
  - PRURITUS [None]
  - RASH VESICULAR [None]
  - SKIN BURNING SENSATION [None]
